FAERS Safety Report 24065250 (Version 1)
Quarter: 2024Q3

REPORT INFORMATION
  Report Type: Report from Study
  Country: BR (occurrence: BR)
  Receive Date: 20240709
  Receipt Date: 20240709
  Transmission Date: 20241017
  Serious: Yes (Other)
  Sender: MYLAN
  Company Number: BR-MYLANLABS-2024M1062841

PATIENT
  Age: 16 Year
  Sex: Female
  Weight: 58 kg

DRUGS (2)
  1. VENLAFAXINE HYDROCHLORIDE [Suspect]
     Active Substance: VENLAFAXINE HYDROCHLORIDE
     Indication: Migraine with aura
     Dosage: 37.5 MILLIGRAM, QD
     Route: 048
     Dates: start: 202405, end: 20240621
  2. VENLAFAXINE [Suspect]
     Active Substance: VENLAFAXINE HYDROCHLORIDE
     Indication: Migraine with aura
     Dosage: 75 MILLIGRAM, QD
     Route: 065
     Dates: start: 20240622

REACTIONS (6)
  - Syncope [Unknown]
  - Depressive symptom [Not Recovered/Not Resolved]
  - Condition aggravated [Not Recovered/Not Resolved]
  - Decreased appetite [Not Recovered/Not Resolved]
  - Anxiety [Not Recovered/Not Resolved]
  - Off label use [Unknown]

NARRATIVE: CASE EVENT DATE: 20240501
